FAERS Safety Report 14236444 (Version 2)
Quarter: 2017Q4

REPORT INFORMATION
  Report Type: Spontaneous
  Country: US (occurrence: US)
  Receive Date: 20171129
  Receipt Date: 20171204
  Transmission Date: 20180321
  Serious: No
  Sender: FDA-Public Use
  Company Number: US-PFIZER INC-2017510508

PATIENT
  Age: 66 Year
  Sex: Male
  Weight: 104 kg

DRUGS (2)
  1. CELECOXIB. [Suspect]
     Active Substance: CELECOXIB
     Indication: JOINT SWELLING
     Dosage: 200 MG, 2X/DAY
     Route: 048
     Dates: start: 20171117, end: 20171125
  2. CELECOXIB. [Suspect]
     Active Substance: CELECOXIB
     Indication: ARTHRITIS

REACTIONS (4)
  - Rash [Recovering/Resolving]
  - Pruritus [Unknown]
  - Sleep disorder [Unknown]
  - Skin disorder [Unknown]

NARRATIVE: CASE EVENT DATE: 201711
